FAERS Safety Report 24128561 (Version 1)
Quarter: 2024Q3

REPORT INFORMATION
  Report Type: Spontaneous
  Country: US (occurrence: None)
  Receive Date: 20240722
  Receipt Date: 20240722
  Transmission Date: 20241017
  Serious: Yes (Hospitalization)
  Sender: Public
  Company Number: None

PATIENT
  Age: 73 Year
  Sex: Male
  Weight: 72 kg

DRUGS (1)
  1. PAXLOVID [Suspect]
     Active Substance: NIRMATRELVIR\RITONAVIR
     Indication: COVID-19
     Dosage: 3 TABLETS TWICE A DAY ORAL?
     Route: 048
     Dates: start: 20240720, end: 20240720

REACTIONS (3)
  - Confusional state [None]
  - Disorientation [None]
  - Speech disorder [None]

NARRATIVE: CASE EVENT DATE: 20240720
